FAERS Safety Report 5782849-6 (Version None)
Quarter: 2008Q2

REPORT INFORMATION
  Report Type: 
  Country: None (occurrence: None)
  Receive Date: 20080624
  Receipt Date: 20080612
  Transmission Date: 20081010
  Serious: Yes (Other)
  Sender: FDA-Public Use
  Company Number: AU-TYCO HEALTHCARE/MALLINCKRODT-T200801021

PATIENT

DRUGS (9)
  1. OXYCODONE HCL [Suspect]
     Indication: ANALGESIA
     Dosage: UNK, UNK
     Dates: start: 20060101, end: 20060101
  2. OXYCODONE CONTROLLED RELEASE [Suspect]
     Indication: ANALGESIA
     Dosage: 40 MG, IN MORNING
     Dates: start: 20060101, end: 20060101
  3. OXYCODONE CONTROLLED RELEASE [Suspect]
     Dosage: 20 MG, AT NIGHT
     Dates: start: 20060101, end: 20060101
  4. TRAMADOL HCL [Concomitant]
     Indication: ANALGESIA
     Dosage: 200 MG, QD
  5. BUPIVACAINE WITH ADRENALINE [Concomitant]
     Indication: LOCAL ANAESTHESIA
     Dosage: 20 ML, 0.5% BUPIVACAINE
     Dates: start: 20060101, end: 20060101
  6. CEPHALOTHIN                        /00010901/ [Concomitant]
     Indication: PROPHYLAXIS
     Dosage: 1 G, UNK
     Dates: start: 20060101, end: 20060101
  7. PROPOFOL [Concomitant]
     Dosage: 860 MG, UNK
     Dates: start: 20060101, end: 20060101
  8. FENTANYL-100 [Concomitant]
     Indication: ANALGESIA
     Dosage: 3000 UG, UNK
     Dates: start: 20060101, end: 20060101
  9. KETAMINE HCL [Concomitant]
     Indication: ANALGESIA
     Dosage: 600 MG, UNK
     Route: 042
     Dates: start: 20060101, end: 20060101

REACTIONS (5)
  - CHOLELITHIASIS [None]
  - HEPATITIS CHOLESTATIC [None]
  - JAUNDICE [None]
  - LIVER DISORDER [None]
  - PRURITUS GENERALISED [None]
